FAERS Safety Report 5139885-2 (Version None)
Quarter: 2006Q4

REPORT INFORMATION
  Report Type: 
  Country: None (occurrence: None)
  Receive Date: 20061025
  Receipt Date: 20061025
  Transmission Date: 20070319
  Serious: Yes (Other)
  Sender: FDA-Public Use
  Company Number: None

PATIENT
  Age: 53 Year
  Sex: Male
  Weight: 54.4 kg

DRUGS (14)
  1. TRAMADOL HCL [Suspect]
  2. MELOXICAM [Concomitant]
  3. ALOH/MGOH/SIMTH XTRA STRENGTH [Concomitant]
  4. MIRTAZAPINE [Concomitant]
  5. OMEPRAZOLE [Concomitant]
  6. QUETIAPINE FUMARATE [Concomitant]
  7. MULTI-VITAMIN [Concomitant]
  8. ASPIRIN [Concomitant]
  9. METFORMIN HCL [Concomitant]
  10. BACLOFEN [Concomitant]
  11. GLIPIZIDE [Concomitant]
  12. INSULIN NPH HUMAN / NOVOLIN N [Concomitant]
  13. NPH INSULIN [Concomitant]
  14. TERAZOSIN HCL [Concomitant]

REACTIONS (2)
  - NAUSEA [None]
  - VOMITING [None]
